FAERS Safety Report 6440093-3 (Version None)
Quarter: 2009Q4

REPORT INFORMATION
  Report Type: 
  Country: None (occurrence: None)
  Receive Date: 20091113
  Receipt Date: 20081017
  Transmission Date: 20100525
  Serious: No
  Sender: FDA-Public Use
  Company Number: A0752530A

PATIENT
  Age: 63 Year
  Sex: Female

DRUGS (6)
  1. CARVEDILOL [Suspect]
     Indication: HYPERTENSION
     Dosage: 3.125MG TWICE PER DAY
     Route: 048
     Dates: end: 20080722
  2. COREG CR [Suspect]
     Indication: HYPERTENSION
     Dosage: 20MG PER DAY
     Route: 048
     Dates: start: 20080723
  3. UNITHROID [Concomitant]
  4. BETOPTIC [Concomitant]
  5. ANALPRAM-HC [Concomitant]
  6. TYLENOL (CAPLET) [Concomitant]

REACTIONS (4)
  - ARTHRALGIA [None]
  - BLOOD PRESSURE INCREASED [None]
  - HEART RATE IRREGULAR [None]
  - POOR QUALITY SLEEP [None]
